FAERS Safety Report 7319101-3 (Version None)
Quarter: 2011Q1

REPORT INFORMATION
  Report Type: 
  Country: None (occurrence: None)
  Receive Date: 20110223
  Receipt Date: 20110223
  Transmission Date: 20110831
  Serious: No
  Sender: FDA-Public Use
  Company Number: None

PATIENT
  Age: 38 Year
  Sex: Female
  Weight: 58.9676 kg

DRUGS (6)
  1. LEVAQUIN [Concomitant]
  2. FLOVENT HFA [Suspect]
     Indication: MUSCULOSKELETAL CHEST PAIN
     Dosage: 2 INHALLATIONS TWICE DAILY
     Dates: start: 20110214, end: 20110220
  3. FLOVENT HFA [Suspect]
     Indication: COUGH
     Dosage: 2 INHALLATIONS TWICE DAILY
     Dates: start: 20110214, end: 20110220
  4. PROZAC [Concomitant]
  5. LORTAB [Concomitant]
  6. XANAX [Concomitant]

REACTIONS (1)
  - PARAESTHESIA [None]
